FAERS Safety Report 25504656 (Version 1)
Quarter: 2025Q3

REPORT INFORMATION
  Report Type: Spontaneous
  Country: US (occurrence: None)
  Receive Date: 20250702
  Receipt Date: 20250702
  Transmission Date: 20251020
  Serious: Yes (Hospitalization)
  Sender: FDA-CTU
  Company Number: None

PATIENT
  Sex: Female

DRUGS (5)
  1. EPOPROSTENOL [Suspect]
     Active Substance: EPOPROSTENOL
     Indication: Pulmonary arterial hypertension
     Route: 041
     Dates: start: 20220825
  2. OPSUMIT [Concomitant]
     Active Substance: MACITENTAN
  3. HEPARIN L/L FLUSH SYR (5ML) [Concomitant]
  4. NORMAL SALINE FLUSH (10ML) [Concomitant]
  5. SODIUM CHLOR (100ML/BAG) [Concomitant]

REACTIONS (1)
  - Mental status changes [None]
